FAERS Safety Report 16425947 (Version 1)
Quarter: 2019Q2

REPORT INFORMATION
  Report Type: Spontaneous
  Country: FR (occurrence: FR)
  Receive Date: 20190613
  Receipt Date: 20190613
  Transmission Date: 20190711
  Serious: Yes (Death, Life-Threatening, Other)
  Sender: FDA-Public Use
  Company Number: FR-MYLANLABS-2019M1054200

PATIENT
  Age: 63 Year
  Sex: Female

DRUGS (12)
  1. GENTAMICIN. [Concomitant]
     Active Substance: GENTAMICIN
     Indication: ANTIBIOTIC PROPHYLAXIS
     Dosage: UNKNOWN
     Route: 065
     Dates: start: 201204
  2. POSACONAZOLE [Concomitant]
     Active Substance: POSACONAZOLE
     Indication: ANTIFUNGAL PROPHYLAXIS
     Dosage: UNKNOWN
     Route: 065
     Dates: start: 201204
  3. VANCOMYCIN [Concomitant]
     Active Substance: VANCOMYCIN
     Dosage: UNK
     Route: 065
  4. DAUNORUBICIN [Suspect]
     Active Substance: DAUNORUBICIN
     Indication: ACUTE MYELOID LEUKAEMIA
     Dosage: UNKNOWN
     Route: 065
     Dates: start: 201204
  5. PIPERACILLIN/TAZOBACTAM [Concomitant]
     Active Substance: PIPERACILLIN SODIUM\TAZOBACTAM SODIUM
     Dosage: UNK
     Route: 065
  6. IDARUBICIN [Suspect]
     Active Substance: IDARUBICIN
     Indication: ACUTE MYELOID LEUKAEMIA
     Dosage: UNKNOWN
     Route: 065
     Dates: start: 201204
  7. CIPROFLOXACIN. [Concomitant]
     Active Substance: CIPROFLOXACIN
     Dosage: UNK
     Route: 065
  8. CYTARABINE. [Suspect]
     Active Substance: CYTARABINE
     Indication: ACUTE MYELOID LEUKAEMIA
     Dosage: UNKNOWN
     Route: 065
     Dates: start: 201204
  9. LOMUSTINE. [Suspect]
     Active Substance: LOMUSTINE
     Indication: ACUTE MYELOID LEUKAEMIA
     Dosage: UNKNOWN
     Route: 065
     Dates: start: 201204
  10. AMIKACIN. [Concomitant]
     Active Substance: AMIKACIN
     Dosage: UNK
     Route: 065
  11. IMIPENEM [Concomitant]
     Active Substance: IMIPENEM
     Dosage: UNK
     Route: 065
  12. COLISTIN [Concomitant]
     Active Substance: COLISTIN
     Indication: ANTIBIOTIC PROPHYLAXIS
     Dosage: UNKNOWN
     Route: 065
     Dates: start: 201204

REACTIONS (8)
  - Geotrichum infection [Fatal]
  - Mitral valve incompetence [Unknown]
  - Neutropenia [Unknown]
  - Multiple organ dysfunction syndrome [Fatal]
  - Tricuspid valve incompetence [Unknown]
  - Endocarditis [Unknown]
  - Sepsis [Fatal]
  - Intestinal mucosal hypertrophy [Unknown]

NARRATIVE: CASE EVENT DATE: 201204
